FAERS Safety Report 8797458 (Version 2)
Quarter: 2015Q2

REPORT INFORMATION
  Report Type: Report from Study
  Country: US (occurrence: US)
  Receive Date: 20120919
  Receipt Date: 20150618
  Transmission Date: 20150821
  Serious: Yes (Death)
  Sender: FDA-Public Use
  Company Number: US-ROCHE-1103784

PATIENT
  Sex: Female

DRUGS (26)
  1. BENADRYL [Concomitant]
     Active Substance: DIPHENHYDRAMINE HYDROCHLORIDE
     Route: 065
  2. TAGAMET [Concomitant]
     Active Substance: CIMETIDINE
  3. PRILOSEC [Concomitant]
     Active Substance: OMEPRAZOLE MAGNESIUM
     Route: 065
  4. ZOLOFT [Concomitant]
     Active Substance: SERTRALINE HYDROCHLORIDE
  5. ARANESP [Concomitant]
     Active Substance: DARBEPOETIN ALFA
     Route: 065
  6. GEMZAR [Concomitant]
     Active Substance: GEMCITABINE HYDROCHLORIDE
     Route: 065
  7. DURAGESIC [Concomitant]
     Active Substance: FENTANYL
     Route: 065
  8. TYLENOL [Concomitant]
     Active Substance: ACETAMINOPHEN
     Route: 065
  9. TARCEVA [Concomitant]
     Active Substance: ERLOTINIB HYDROCHLORIDE
     Indication: RENAL CANCER
     Route: 065
  10. VITAMIN B12 [Concomitant]
     Active Substance: CYANOCOBALAMIN
  11. ANZEMET [Concomitant]
     Active Substance: DOLASETRON MESYLATE
  12. AVASTIN [Suspect]
     Active Substance: BEVACIZUMAB
     Indication: RENAL CANCER
     Dosage: IN 100 ML NORMAL SALINE
     Route: 042
  13. INTRON [Concomitant]
     Active Substance: INTERFERON ALFA-2B
     Route: 065
  14. PROCRIT [Concomitant]
     Active Substance: ERYTHROPOIETIN
     Route: 065
  15. ATIVAN ORAL [Concomitant]
     Route: 065
  16. DECADRON [Concomitant]
     Active Substance: DEXAMETHASONE
  17. ZOMETA [Concomitant]
     Active Substance: ZOLEDRONIC ACID
     Route: 042
  18. TUSSIN [Concomitant]
     Active Substance: GUAIFENESIN
  19. MSIR [Concomitant]
     Active Substance: MORPHINE SULFATE
  20. COLACE [Concomitant]
     Active Substance: DOCUSATE SODIUM
     Route: 065
  21. NAPROSYN [Concomitant]
     Active Substance: NAPROXEN
     Route: 065
  22. ADRIAMYCIN [Concomitant]
     Active Substance: DOXORUBICIN HYDROCHLORIDE
     Route: 065
  23. TYLENOL [Concomitant]
     Active Substance: ACETAMINOPHEN
     Route: 065
  24. GEMZAR [Concomitant]
     Active Substance: GEMCITABINE HYDROCHLORIDE
     Route: 065
  25. ZOFRAN [Concomitant]
     Active Substance: ONDANSETRON HYDROCHLORIDE
     Route: 042
  26. SOLU-MEDROL [Concomitant]
     Active Substance: METHYLPREDNISOLONE SODIUM SUCCINATE
     Route: 042

REACTIONS (3)
  - Nausea [Unknown]
  - Death [Fatal]
  - Off label use [Unknown]
